FAERS Safety Report 14823406 (Version 1)
Quarter: 2018Q2

REPORT INFORMATION
  Report Type: Report from Study
  Country: None (occurrence: PR)
  Receive Date: 20180427
  Receipt Date: 20180427
  Transmission Date: 20180711
  Serious: Yes (Hospitalization, Other)
  Sender: FDA-Public Use
  Company Number: PR-ABBVIE-18K-131-2313541-00

PATIENT
  Age: 89 Year
  Sex: Female

DRUGS (1)
  1. DUOPA [Suspect]
     Active Substance: CARBIDOPA\LEVODOPA
     Indication: PARKINSON^S DISEASE
     Route: 050

REACTIONS (7)
  - Fall [Recovered/Resolved]
  - Skin ulcer [Recovering/Resolving]
  - Calcinosis [Recovered/Resolved]
  - Depressed mood [Recovered/Resolved]
  - Muscular weakness [Not Recovered/Not Resolved]
  - Stress fracture [Recovered/Resolved]
  - Fall [Not Recovered/Not Resolved]

NARRATIVE: CASE EVENT DATE: 20180310
